FAERS Safety Report 12773981 (Version 1)
Quarter: 2016Q3

REPORT INFORMATION
  Report Type: Spontaneous
  Country: GB (occurrence: GB)
  Receive Date: 20160923
  Receipt Date: 20160923
  Transmission Date: 20161109
  Serious: Yes (Death)
  Sender: FDA-Public Use
  Company Number: GB-ACCORD-044179

PATIENT
  Sex: Male
  Weight: 95 kg

DRUGS (8)
  1. METHOTREXATE. [Suspect]
     Active Substance: METHOTREXATE
     Indication: RHEUMATOID ARTHRITIS
     Route: 048
     Dates: start: 20141219, end: 20160505
  2. SERTRALINE/SERTRALINE HYDROCHLORIDE [Concomitant]
  3. LANSOPRAZOLE. [Concomitant]
     Active Substance: LANSOPRAZOLE
  4. AMITRIPTYLINE [Concomitant]
     Active Substance: AMITRIPTYLINE
  5. FOLATE SODIUM/FOLIC ACID [Concomitant]
  6. FINASTERIDE. [Concomitant]
     Active Substance: FINASTERIDE
  7. TAMSULOSIN/TAMSULOSIN HYDROCHLORIDE [Concomitant]
  8. NEFOPAM/NEFOPAM HYDROCHLORIDE [Concomitant]

REACTIONS (2)
  - Pneumonia [Fatal]
  - Immunodeficiency [Fatal]

NARRATIVE: CASE EVENT DATE: 20160505
